FAERS Safety Report 11715250 (Version 2)
Quarter: 2015Q4

REPORT INFORMATION
  Report Type: Spontaneous
  Country: IT (occurrence: IT)
  Receive Date: 20151109
  Receipt Date: 20151124
  Transmission Date: 20160304
  Serious: Yes (Death)
  Sender: FDA-Public Use
  Company Number: IT-PFIZER INC-2015367296

PATIENT
  Age: 76 Year
  Sex: Male

DRUGS (2)
  1. SUTENT [Suspect]
     Active Substance: SUNITINIB MALATE
     Indication: RENAL CANCER
     Dosage: 37.5 MG, CYCLIC (SCHEDULE 4W / 2W
     Dates: start: 201506, end: 201508
  2. SUTENT [Suspect]
     Active Substance: SUNITINIB MALATE
     Dosage: 25 MG, DAILY
     Route: 048
     Dates: start: 20150827, end: 20150924

REACTIONS (4)
  - Renal cancer [Unknown]
  - Haemoptysis [Fatal]
  - Mucosal inflammation [Unknown]
  - Disease progression [Unknown]

NARRATIVE: CASE EVENT DATE: 20151009
